FAERS Safety Report 17070060 (Version 2)
Quarter: 2019Q4

REPORT INFORMATION
  Report Type: Report from Study
  Country: US (occurrence: US)
  Receive Date: 20191125
  Receipt Date: 20191126
  Transmission Date: 20200122
  Serious: Yes (Hospitalization, Other)
  Sender: FDA-Public Use
  Company Number: US-BIOGEN-2019BI00808555

PATIENT
  Sex: Female

DRUGS (3)
  1. AMPYRA [Suspect]
     Active Substance: DALFAMPRIDINE
     Indication: GAIT DISTURBANCE
     Route: 065
  2. NEULASTA [Concomitant]
     Active Substance: PEGFILGRASTIM
     Indication: PRODUCT USED FOR UNKNOWN INDICATION
     Route: 065
  3. TECFIDERA [Suspect]
     Active Substance: DIMETHYL FUMARATE
     Indication: MULTIPLE SCLEROSIS
     Dosage: MAINTENANCE DOSE
     Route: 048
     Dates: start: 2013

REACTIONS (10)
  - Dry mouth [Unknown]
  - Adhesion [Unknown]
  - Dry eye [Unknown]
  - Fibromyalgia [Unknown]
  - Haemorrhage [Unknown]
  - Stress [Unknown]
  - Escherichia infection [Not Recovered/Not Resolved]
  - Optic neuritis [Unknown]
  - Multiple sclerosis relapse [Unknown]
  - Osteoarthritis [Unknown]
